FAERS Safety Report 25001700 (Version 3)
Quarter: 2025Q4

REPORT INFORMATION
  Report Type: Report from Study
  Country: GB (occurrence: GB)
  Receive Date: 20250223
  Receipt Date: 20251216
  Transmission Date: 20260118
  Serious: Yes (Other)
  Sender: AMGEN
  Company Number: GB-BEH-2025196300

PATIENT
  Age: 69 Year
  Sex: Male
  Weight: 83.7 kg

DRUGS (18)
  1. AVACOPAN [Suspect]
     Active Substance: AVACOPAN
     Indication: Anti-neutrophil cytoplasmic antibody positive vasculitis
     Dosage: 30 MG, BID
     Route: 048
     Dates: start: 20240221
  2. PREDNISOLONE [Concomitant]
     Active Substance: PREDNISOLONE
     Indication: Anti-neutrophil cytoplasmic antibody positive vasculitis
     Dosage: 60 MG, QD, WEANING DOSE
     Route: 048
     Dates: start: 20240205, end: 20240211
  3. PREDNISOLONE [Concomitant]
     Active Substance: PREDNISOLONE
     Dosage: 40 MG, QD, WEANING DOSE
     Route: 048
     Dates: start: 20240211, end: 20240218
  4. PREDNISOLONE [Concomitant]
     Active Substance: PREDNISOLONE
     Dosage: 30 MG, QD, WEANING DOSE
     Route: 048
     Dates: start: 20240218, end: 20240305
  5. PREDNISOLONE [Concomitant]
     Active Substance: PREDNISOLONE
     Dosage: 25 MG, QD, WEANING DOSE
     Route: 048
     Dates: start: 20240305, end: 20240326
  6. PREDNISOLONE [Concomitant]
     Active Substance: PREDNISOLONE
     Dosage: 15 MG, QD, WEANING DOSE
     Route: 048
     Dates: start: 20240326, end: 20240507
  7. PREDNISOLONE [Concomitant]
     Active Substance: PREDNISOLONE
     Dosage: 10 MG, OD, WEANING DOSE
     Route: 048
     Dates: start: 20240507, end: 20240619
  8. PREDNISOLONE [Concomitant]
     Active Substance: PREDNISOLONE
     Dosage: 5 MG, QD, WEANING DOSE
     Route: 048
     Dates: start: 20240619, end: 20250129
  9. CYCLOPHOSPHAMIDE [Concomitant]
     Active Substance: CYCLOPHOSPHAMIDE
     Indication: Anti-neutrophil cytoplasmic antibody positive vasculitis
     Dosage: 750 MG, SINGLE IV INFUSION
     Route: 065
     Dates: start: 20240207, end: 20240207
  10. CYCLOPHOSPHAMIDE [Concomitant]
     Active Substance: CYCLOPHOSPHAMIDE
     Dosage: 750 MG, SINGLE IV INFUSION
     Route: 065
     Dates: start: 20240220, end: 20240220
  11. CYCLOPHOSPHAMIDE [Concomitant]
     Active Substance: CYCLOPHOSPHAMIDE
     Dosage: 750 MG, SINGLE IV INFUSION
     Route: 065
     Dates: start: 20240305, end: 20240305
  12. CYCLOPHOSPHAMIDE [Concomitant]
     Active Substance: CYCLOPHOSPHAMIDE
     Dosage: 1000 MG, SINGLE IV INFUSION
     Route: 065
     Dates: start: 20240326, end: 20240326
  13. METHYLPREDNISOLONE [Concomitant]
     Active Substance: METHYLPREDNISOLONE
     Indication: Anti-neutrophil cytoplasmic antibody positive vasculitis
     Dosage: 500 MG, QD, COMPLETION OF PLANNED COURSE
     Route: 040
     Dates: start: 20240201, end: 20240203
  14. SODIUM BICARBONATE [Concomitant]
     Active Substance: SODIUM BICARBONATE
     Indication: Hyperkalaemia
     Dosage: 1 G, BID, COMPLETION OF PLANNED COURSE
     Route: 048
     Dates: start: 20240222, end: 20240224
  15. MYCOPHENOLIC ACID [Concomitant]
     Active Substance: MYCOPHENOLIC ACID
     Indication: Anti-neutrophil cytoplasmic antibody positive vasculitis
     Dosage: 250 MG, BID, COMPLETION OF PLANNED COURSE
     Route: 048
     Dates: start: 20240517, end: 20240625
  16. MYCOPHENOLIC ACID [Concomitant]
     Active Substance: MYCOPHENOLIC ACID
     Dosage: 500 MG, BID, COMPLETION OF PLANNED COURSE
     Route: 048
     Dates: start: 20240625, end: 20250129
  17. MYCOPHENOLIC ACID [Concomitant]
     Active Substance: MYCOPHENOLIC ACID
     Dosage: 250 MG, BID, COMPLETION OF PLANNED COURSE
     Route: 048
     Dates: start: 20250129, end: 20251118
  18. MYCOPHENOLIC ACID [Concomitant]
     Active Substance: MYCOPHENOLIC ACID
     Dosage: 500 MG, BID
     Route: 048
     Dates: start: 20251119

REACTIONS (2)
  - Herpes zoster [Recovering/Resolving]
  - Joint swelling [Not Recovered/Not Resolved]

NARRATIVE: CASE EVENT DATE: 20250101
